FAERS Safety Report 5614248-1 (Version None)
Quarter: 2008Q1

REPORT INFORMATION
  Report Type: 
  Country: None (occurrence: None)
  Receive Date: 20080205
  Receipt Date: 20080131
  Transmission Date: 20080703
  Serious: Yes (Hospitalization)
  Sender: FDA-Public Use
  Company Number: CH-PFIZER INC-2007060114

PATIENT
  Age: 21 Year
  Sex: Female

DRUGS (6)
  1. ZITHROMAX [Suspect]
     Indication: ACUTE SINUSITIS
     Route: 048
     Dates: start: 20070320, end: 20070322
  2. ZITHROMAX [Suspect]
     Dosage: DAILY DOSE:250MG
     Route: 048
     Dates: start: 20070323, end: 20070323
  3. SINUPRET [Suspect]
     Indication: ACUTE SINUSITIS
     Route: 048
     Dates: start: 20070320, end: 20070323
  4. DAFALGAN [Concomitant]
     Route: 048
     Dates: start: 20070320, end: 20070323
  5. YASMIN [Concomitant]
     Route: 048
  6. DOMPERIDONE [Concomitant]
     Route: 048
     Dates: start: 20070322, end: 20070323

REACTIONS (5)
  - AGITATION [None]
  - ENCEPHALOPATHY [None]
  - EPILEPSY [None]
  - FATIGUE [None]
  - SOMNOLENCE [None]
